FAERS Safety Report 7996785 (Version 2)
Quarter: 2012Q4

REPORT INFORMATION
  Report Type: 
  Country: CA (occurrence: CA)
  Receive Date: 20110617
  Receipt Date: 20121107
  Transmission Date: 20130627
  Serious: Yes (Death, Hospitalization, Other)
  Sender: FDA-Public Use
  Company Number: PHMT2005CA00554

PATIENT
  Sex: Male

DRUGS (18)
  1. SANDOSTATIN LAR [Suspect]
     Indication: CARCINOID TUMOUR
     Dosage: 60 mg, every 2 weeks
     Dates: start: 20030120, end: 20060301
  2. BUSCOPAN [Concomitant]
     Indication: GASTROINTESTINAL DISORDER
  3. CENTRUM [Concomitant]
  4. COTAZYM [Concomitant]
  5. EMLA PATCH [Concomitant]
  6. FUCIDIN [Concomitant]
  7. SODIUM ALGINATE [Concomitant]
  8. OMEPRAZOLE SODIUM [Concomitant]
  9. METOPROLOL [Concomitant]
  10. SYNTHROID [Concomitant]
  11. TYLENOL [Concomitant]
  12. CELEXA [Concomitant]
  13. DILAUDID [Concomitant]
  14. FLOMAX [Concomitant]
  15. GAVISCON [Concomitant]
  16. LOSEC [Concomitant]
  17. MULTIVITAMINS [Concomitant]
  18. VITAMIN D [Concomitant]

REACTIONS (23)
  - Death [Fatal]
  - Infection [Unknown]
  - Blood pressure systolic decreased [Unknown]
  - Blood pressure decreased [Unknown]
  - Somnolence [Not Recovered/Not Resolved]
  - Oedema peripheral [Unknown]
  - Decreased appetite [Unknown]
  - Intestinal obstruction [Unknown]
  - Functional gastrointestinal disorder [Unknown]
  - Diarrhoea [Unknown]
  - Oedema [Unknown]
  - Flushing [Unknown]
  - Hyperhidrosis [Unknown]
  - Hypotension [Unknown]
  - Tremor [Unknown]
  - Eye pain [Unknown]
  - Palpitations [Unknown]
  - Injection site pain [Unknown]
  - Constipation [Unknown]
  - Tachycardia [Unknown]
  - Abdominal discomfort [Unknown]
  - Fatigue [Unknown]
  - Abdominal pain [Unknown]
